FAERS Safety Report 6245117-4 (Version None)
Quarter: 2009Q2

REPORT INFORMATION
  Report Type: 
  Country: None (occurrence: None)
  Receive Date: 20090619
  Receipt Date: 20090415
  Transmission Date: 20091009
  Serious: No
  Sender: FDA-Public Use
  Company Number: SPV1-2009-00705

PATIENT
  Sex: Male

DRUGS (2)
  1. VYVANSE [Suspect]
     Dosage: 1X/DAY:QD, ORAL
     Route: 048
  2. ADDERALL 10 [Suspect]
     Dosage: ORAL
     Route: 048

REACTIONS (4)
  - DELUSION [None]
  - IRRITABILITY [None]
  - PSYCHOTIC DISORDER [None]
  - SOMNOLENCE [None]
